FAERS Safety Report 9087518 (Version 1)
Quarter: 2013Q1

REPORT INFORMATION
  Report Type: Spontaneous
  Country: NO (occurrence: NO)
  Receive Date: 20130217
  Receipt Date: 20130217
  Transmission Date: 20140127
  Serious: Yes (Hospitalization)
  Sender: FDA-Public Use
  Company Number: NO-JNJFOC-20130201849

PATIENT
  Age: 85 Year
  Sex: Male

DRUGS (9)
  1. REMICADE [Suspect]
     Indication: RHEUMATOID ARTHRITIS
     Route: 042
     Dates: start: 2004
  2. REMICADE [Suspect]
     Indication: RHEUMATOID ARTHRITIS
     Route: 042
     Dates: start: 201111
  3. PREDNISOLON [Suspect]
     Indication: RHEUMATOID ARTHRITIS
     Route: 065
     Dates: start: 1999
  4. METHOTREXAT [Suspect]
     Indication: RHEUMATOID ARTHRITIS
     Route: 065
  5. METHOTREXAT [Suspect]
     Indication: RHEUMATOID ARTHRITIS
     Route: 065
     Dates: start: 1999
  6. FOLIC ACID [Concomitant]
     Indication: RHEUMATOID ARTHRITIS
     Route: 065
     Dates: start: 1999
  7. AMLODIPINE [Concomitant]
     Route: 065
  8. CALCIGRAN FORTE [Concomitant]
     Route: 065
  9. CARDURAN [Concomitant]
     Route: 065

REACTIONS (3)
  - Basal cell carcinoma [Recovering/Resolving]
  - Dermal cyst [Recovered/Resolved]
  - Actinic keratosis [Unknown]
